FAERS Safety Report 8058288-4 (Version None)
Quarter: 2012Q1

REPORT INFORMATION
  Report Type: 
  Country: None (occurrence: None)
  Receive Date: 20120112
  Receipt Date: 20111230
  Transmission Date: 20120608
  Serious: Yes (Hospitalization, Other)
  Sender: FDA-Public Use
  Company Number: 2011MA018193

PATIENT
  Age: 77 Year
  Sex: Male

DRUGS (1)
  1. CARBIDOPA AND LEVODOPA [Suspect]
     Indication: PARKINSON'S DISEASE
     Dosage: 100 MG;TID;PO
     Route: 048

REACTIONS (10)
  - RESPIRATORY DISORDER [None]
  - IRRITABILITY [None]
  - HALLUCINATION, VISUAL [None]
  - RENAL FAILURE [None]
  - DYSPHONIA [None]
  - DYSPNOEA [None]
  - MUSCLE RIGIDITY [None]
  - CONFUSIONAL STATE [None]
  - AGITATION [None]
  - BRADYKINESIA [None]
